FAERS Safety Report 4754953-2 (Version None)
Quarter: 2005Q3

REPORT INFORMATION
  Report Type: 
  Country: None (occurrence: None)
  Receive Date: 20050829
  Receipt Date: 20050819
  Transmission Date: 20060218
  Serious: Yes (Hospitalization, Disabling, Other)
  Sender: FDA-Public Use
  Company Number: US-MERCK-0508USA03985

PATIENT
  Age: 52 Year
  Sex: Male
  Weight: 76 kg

DRUGS (5)
  1. VIOXX [Suspect]
     Indication: PAIN MANAGEMENT
     Route: 048
     Dates: start: 20030110, end: 20031208
  2. LORTAB [Concomitant]
     Route: 065
  3. ASPIRIN [Concomitant]
     Route: 065
  4. IBUPROFEN [Concomitant]
     Route: 065
  5. ZOCOR [Concomitant]
     Route: 065

REACTIONS (9)
  - ADVERSE EVENT [None]
  - AORTIC DILATATION [None]
  - AORTIC VALVE INCOMPETENCE [None]
  - ARTHROPATHY [None]
  - CHEST PAIN [None]
  - HERNIA [None]
  - MITRAL VALVE INCOMPETENCE [None]
  - MYOCARDIAL INFARCTION [None]
  - TRICUSPID VALVE INCOMPETENCE [None]
